FAERS Safety Report 8620681-6 (Version None)
Quarter: 2012Q3

REPORT INFORMATION
  Report Type: 
  Country: None (occurrence: None)
  Receive Date: 20120824
  Receipt Date: 20120809
  Transmission Date: 20120928
  Serious: Yes (Life-Threatening, Other)
  Sender: FDA-Public Use
  Company Number: FR-BAXTER-2012BAX014043

PATIENT
  Sex: Male

DRUGS (16)
  1. RIFABUTIN [Suspect]
     Indication: ATYPICAL MYCOBACTERIUM PERICARDITIS
     Route: 048
     Dates: start: 20120711
  2. PRAZEPAM [Suspect]
     Dosage: 1 UNIT
     Route: 048
     Dates: start: 20120710
  3. OLANZAPINE [Suspect]
     Dosage: 1 UNIT
     Route: 048
     Dates: start: 20120101
  4. TRUVADA [Suspect]
     Indication: HIV INFECTION
     Route: 048
     Dates: start: 20120301
  5. LEUCOVORIN CALCIUM [Suspect]
     Route: 048
     Dates: start: 20120710
  6. ACETAMINOPHEN [Suspect]
     Indication: PAIN
     Route: 042
     Dates: start: 20120711
  7. KALETRA [Suspect]
     Indication: HIV INFECTION
     Route: 048
     Dates: start: 20120301
  8. ACUPAN [Suspect]
     Indication: PAIN
     Route: 042
     Dates: start: 20120716, end: 20120727
  9. POTASSIUM CHLORIDE [Suspect]
     Route: 048
     Dates: start: 20120710
  10. CLARITHROMYCIN [Suspect]
     Indication: ATYPICAL MYCOBACTERIUM PERICARDITIS
     Route: 048
     Dates: start: 20120711
  11. AMIKACIN [Suspect]
     Indication: ATYPICAL MYCOBACTERIUM PERICARDITIS
     Route: 042
     Dates: start: 20120711
  12. CERNEVIT-12 [Suspect]
     Indication: VITAMIN SUPPLEMENTATION
     Route: 042
     Dates: start: 20120710, end: 20120802
  13. PERIKABIVEN [Suspect]
     Indication: PARENTERAL NUTRITION
     Route: 051
     Dates: start: 20120710
  14. ISENTRESS [Suspect]
     Indication: HIV INFECTION
     Route: 048
     Dates: start: 20120501
  15. BACTRIM [Suspect]
     Indication: ATYPICAL MYCOBACTERIUM PERICARDITIS
     Route: 048
     Dates: start: 20120713
  16. MYAMBUTOL [Suspect]
     Dosage: 2 UNITS
     Route: 048
     Dates: start: 20120711

REACTIONS (3)
  - COMA [None]
  - CONVULSION [None]
  - RENAL FAILURE [None]
